FAERS Safety Report 8102425-X (Version None)
Quarter: 2012Q1

REPORT INFORMATION
  Report Type: 
  Country: None (occurrence: None)
  Receive Date: 20120131
  Receipt Date: 20120131
  Transmission Date: 20120608
  Serious: Yes (Other)
  Sender: FDA-Public Use
  Company Number: None

PATIENT
  Age: 36 Year
  Sex: Female
  Weight: 70.3075 kg

DRUGS (3)
  1. IBUPROFEN (ADVIL) [Concomitant]
  2. CIPROFLOXACIN [Suspect]
     Indication: URINARY TRACT OBSTRUCTION
     Dosage: UNKNOWN ONCE IV; 500 MG, 2X DAY ORAL
     Route: 042
     Dates: start: 20111126, end: 20111208
  3. CIPROFLOXACIN [Suspect]
     Indication: URINARY TRACT INFECTION
     Dosage: UNKNOWN ONCE IV; 500 MG, 2X DAY ORAL
     Route: 042
     Dates: start: 20111126, end: 20111208

REACTIONS (15)
  - FEELING ABNORMAL [None]
  - MENTAL DISORDER [None]
  - DECREASED APPETITE [None]
  - ARTHRALGIA [None]
  - ANXIETY [None]
  - INSOMNIA [None]
  - DEPRESSION [None]
  - PARAESTHESIA [None]
  - HYPOAESTHESIA [None]
  - JOINT CREPITATION [None]
  - MUSCULAR WEAKNESS [None]
  - PANIC ATTACK [None]
  - HEART RATE INCREASED [None]
  - NIGHTMARE [None]
  - DRY MOUTH [None]
